FAERS Safety Report 7771744-9 (Version None)
Quarter: 2011Q3

REPORT INFORMATION
  Report Type: 
  Country: None (occurrence: None)
  Receive Date: 20110922
  Receipt Date: 20110912
  Transmission Date: 20111222
  Serious: No
  Sender: FDA-Public Use
  Company Number: US-B.I. PHARMACEUTICALS,INC./RIDGEFIELD-2011-BP-22087BP

PATIENT
  Sex: Female

DRUGS (6)
  1. NIFEDIPINE [Concomitant]
     Indication: HYPERTENSION
     Dosage: 60 MG
     Route: 048
  2. OXYGEN [Concomitant]
  3. FUROSEMIDE [Concomitant]
     Indication: FLUID RETENTION
     Dosage: 20 MG
     Route: 048
  4. PRADAXA [Suspect]
     Indication: ATRIAL FIBRILLATION
     Dosage: 300 MG
     Route: 048
     Dates: start: 20110401
  5. DIGOXIN [Concomitant]
     Dosage: 250 MCG
     Route: 048
  6. TRIAMTERENE AND HYDROCHLOROTHIAZIDE [Concomitant]
     Dosage: 37.5 MG
     Route: 048

REACTIONS (2)
  - INSOMNIA [None]
  - NAUSEA [None]
